FAERS Safety Report 6983388-7 (Version None)
Quarter: 2010Q3

REPORT INFORMATION
  Report Type: 
  Country: None (occurrence: None)
  Receive Date: 20100914
  Receipt Date: 20100914
  Transmission Date: 20110219
  Serious: Yes (Life-Threatening, Hospitalization)
  Sender: FDA-Public Use
  Company Number: None

PATIENT
  Age: 72 Year
  Sex: Male

DRUGS (1)
  1. ZOSYN [Suspect]
     Indication: SEPSIS
     Dosage: 3.375G Q6H IV
     Route: 042

REACTIONS (1)
  - HAEMOLYSIS [None]
